FAERS Safety Report 15316415 (Version 1)
Quarter: 2018Q3

REPORT INFORMATION
  Report Type: Spontaneous
  Country: DE (occurrence: DE)
  Receive Date: 20180824
  Receipt Date: 20180824
  Transmission Date: 20181010
  Serious: Yes (Life-Threatening)
  Sender: FDA-Public Use
  Company Number: DE-BAYER-2018-146527

PATIENT
  Age: 17 Year
  Sex: Female

DRUGS (3)
  1. KYLEENA [Suspect]
     Active Substance: LEVONORGESTREL
     Indication: CONTRACEPTION
  2. KYLEENA [Suspect]
     Active Substance: LEVONORGESTREL
     Indication: LIPOPROTEIN (A) INCREASED
     Dosage: 17.5 MCG/24HR, CONT
     Route: 015
     Dates: start: 20180703, end: 20180803
  3. KYLEENA [Suspect]
     Active Substance: LEVONORGESTREL
     Indication: DRUG INTOLERANCE

REACTIONS (2)
  - Genital haemorrhage [None]
  - Device expulsion [None]

NARRATIVE: CASE EVENT DATE: 20180803
